FAERS Safety Report 25930533 (Version 1)
Quarter: 2025Q4

REPORT INFORMATION
  Report Type: Spontaneous
  Country: GB (occurrence: None)
  Receive Date: 20251016
  Receipt Date: 20251016
  Transmission Date: 20260118
  Serious: Yes (Disabling)
  Sender: FDA-CTU
  Company Number: None

PATIENT
  Age: 26 Year
  Sex: Female
  Weight: 72.45 kg

DRUGS (2)
  1. SERTRALINE [Suspect]
     Active Substance: SERTRALINE HYDROCHLORIDE
     Indication: Anxiety
     Dosage: OTHER QUANTITY : 1 TABLET(S);?
     Route: 048
  2. CITALOPRAM [Suspect]
     Active Substance: CITALOPRAM

REACTIONS (13)
  - Anxiety [None]
  - Agitation [None]
  - Dyskinesia [None]
  - Emotional poverty [None]
  - Hypoaesthesia [None]
  - Sexual dysfunction [None]
  - Dementia [None]
  - Amnesia [None]
  - Imperception [None]
  - Constipation [None]
  - Female orgasmic disorder [None]
  - Drug intolerance [None]
  - Sexual dysfunction [None]

NARRATIVE: CASE EVENT DATE: 20240529
